FAERS Safety Report 10829981 (Version 1)
Quarter: 2015Q1

REPORT INFORMATION
  Report Type: Report from Study
  Country: US (occurrence: US)
  Receive Date: 20150219
  Receipt Date: 20150219
  Transmission Date: 20150721
  Serious: No
  Sender: FDA-Public Use
  Company Number: US-ABBVIE-14P-163-1188133-00

PATIENT
  Age: 52 Year
  Sex: Female

DRUGS (8)
  1. HUMIRA [Suspect]
     Active Substance: ADALIMUMAB
     Indication: CROHN^S DISEASE
     Dates: start: 201308
  2. CHLORDIAZEPOXIDE [Concomitant]
     Active Substance: CHLORDIAZEPOXIDE
     Indication: CROHN^S DISEASE
     Dosage: 5/2.5 MG, 1 IN AM AND 3 AT NIGHT
  3. PANTOPRAZOLE [Concomitant]
     Active Substance: PANTOPRAZOLE SODIUM
     Indication: GASTROOESOPHAGEAL REFLUX DISEASE
  4. MERCAPTOPURINE. [Concomitant]
     Active Substance: MERCAPTOPURINE
     Indication: CROHN^S DISEASE
  5. TRAZODONE [Concomitant]
     Active Substance: TRAZODONE HYDROCHLORIDE
     Indication: MIGRAINE
     Dosage: AT NIGHT
  6. ESTROPIPATE. [Concomitant]
     Active Substance: ESTROPIPATE
     Indication: OESTROGEN REPLACEMENT THERAPY
  7. TOPIRAMATE. [Concomitant]
     Active Substance: TOPIRAMATE
     Indication: MIGRAINE
     Dosage: AT NIGHT
  8. VIVACTIL [Concomitant]
     Active Substance: PROTRIPTYLINE HYDROCHLORIDE
     Indication: MIGRAINE

REACTIONS (5)
  - Constipation [Not Recovered/Not Resolved]
  - Abdominal pain [Unknown]
  - Haemorrhoids [Unknown]
  - Haematochezia [Unknown]
  - Bunion operation [Unknown]

NARRATIVE: CASE EVENT DATE: 201308
